FAERS Safety Report 20138567 (Version 1)
Quarter: 2021Q4

REPORT INFORMATION
  Report Type: Spontaneous
  Country: JP (occurrence: JP)
  Receive Date: 20211202
  Receipt Date: 20211202
  Transmission Date: 20220303
  Serious: Yes (Other)
  Sender: FDA-Public Use
  Company Number: JP-TEVA-2021-JP-1982928

PATIENT
  Age: 5 Year
  Sex: Male

DRUGS (4)
  1. TRISENOX [Suspect]
     Active Substance: ARSENIC TRIOXIDE
     Indication: Acute promyelocytic leukaemia
     Route: 042
  2. TRISENOX [Suspect]
     Active Substance: ARSENIC TRIOXIDE
     Route: 042
  3. CYTARABINE [Concomitant]
     Active Substance: CYTARABINE
  4. TRETINOIN [Concomitant]
     Active Substance: TRETINOIN
     Indication: Acute promyelocytic leukaemia

REACTIONS (2)
  - White blood cell count increased [Unknown]
  - Differentiation syndrome [Unknown]
